FAERS Safety Report 9722916 (Version 1)
Quarter: 2013Q4

REPORT INFORMATION
  Report Type: Spontaneous
  Country: US (occurrence: None)
  Receive Date: 20131126
  Receipt Date: 20131126
  Transmission Date: 20140711
  Serious: Yes (Other)
  Sender: FDA-Public Use
  Company Number: ADE13-029

PATIENT
  Age: 59 Year
  Sex: Female
  Weight: 80 kg

DRUGS (6)
  1. HEPARIN SODIUM [Suspect]
     Indication: CATHETERISATION CARDIAC
     Dosage: 14,500 U TITRATED IV
     Route: 042
     Dates: start: 20131028, end: 20131028
  2. ASPIRIN [Concomitant]
  3. CLOPIDOGREL [Concomitant]
  4. FENTANYL [Concomitant]
  5. MIDAZOLAM [Concomitant]
  6. RADIAL MIX (NITROGLYCERN/VERAPAMIL/ HEPARIN) [Concomitant]

REACTIONS (2)
  - Drug effect decreased [None]
  - Coagulation time shortened [None]
